FAERS Safety Report 14411885 (Version 4)
Quarter: 2018Q1

REPORT INFORMATION
  Report Type: Spontaneous
  Country: CH (occurrence: CH)
  Receive Date: 20180119
  Receipt Date: 20180131
  Transmission Date: 20180509
  Serious: Yes (Death, Hospitalization)
  Sender: FDA-Public Use
  Company Number: CH-PFIZER INC-2018023488

PATIENT
  Age: 59 Year
  Sex: Female

DRUGS (19)
  1. BEPANTHEN (DEXPANTHENOL) [Concomitant]
     Active Substance: DEXPANTHENOL
     Dosage: UNK
     Route: 061
     Dates: start: 20171203
  2. FORTALIS BALSAM [Concomitant]
     Dosage: UNK
     Route: 061
     Dates: start: 20171203
  3. HEMERAN [Concomitant]
     Indication: PHLEBITIS
     Dosage: UNK
     Route: 061
     Dates: start: 20171203
  4. NICOTINELL [Concomitant]
     Active Substance: NICOTINE
     Dosage: UNK, 1X/DAY
     Route: 062
     Dates: start: 20171203
  5. OXYNORM [Suspect]
     Active Substance: OXYCODONE HYDROCHLORIDE
     Indication: ANALGESIC THERAPY
     Dosage: UNK
     Route: 048
     Dates: start: 20171203, end: 20171214
  6. SURMONTIL [Suspect]
     Active Substance: TRIMIPRAMINE MALEATE
     Dosage: 25 MG, UNK
     Route: 048
     Dates: end: 20171203
  7. LAXOBERON [Concomitant]
     Active Substance: SODIUM PICOSULFATE
     Dosage: UNK
     Route: 048
     Dates: start: 20171203, end: 20171208
  8. QUETIAPIN SANDOZ [Suspect]
     Active Substance: QUETIAPINE
     Indication: DELIRIUM
     Dosage: 25 MG, UNK
     Route: 048
     Dates: start: 20171203, end: 20171219
  9. BACTRIM [Suspect]
     Active Substance: SULFAMETHOXAZOLE\TRIMETHOPRIM
     Dosage: UNK
     Route: 048
     Dates: start: 20171204, end: 20171206
  10. VI-DE 3 [Concomitant]
     Active Substance: CHOLECALCIFEROL
     Dosage: 40 MG, 1X/DAY
     Route: 048
     Dates: start: 20171203
  11. CLEXANE [Concomitant]
     Active Substance: ENOXAPARIN SODIUM
     Dosage: 40 MG, 1X/DAY
     Route: 058
  12. PREGABALIN PFIZER [Suspect]
     Active Substance: PREGABALIN
     Dosage: 25 MG, 2-3X/DAY
     Route: 065
     Dates: start: 20171207
  13. SAROTEN [Suspect]
     Active Substance: AMITRIPTYLINE
     Dosage: 25 MG, TID
     Route: 048
     Dates: end: 20171207
  14. LYRICA [Suspect]
     Active Substance: PREGABALIN
     Dosage: 150 MG, BID
     Route: 048
     Dates: start: 2017, end: 20171203
  15. TRANSTEC [Suspect]
     Active Substance: BUPRENORPHINE
     Indication: ANALGESIC THERAPY
     Dosage: UNK, 1X/DAY(35UG/H TRANSDERMAL PATCH)
     Route: 062
     Dates: start: 2017, end: 20171212
  16. BRUFEN [Suspect]
     Active Substance: IBUPROFEN
     Dosage: 400 MG, TID
     Route: 048
     Dates: start: 2017, end: 20171203
  17. NOVALGIN (METAMIZOLE SODIUM) [Concomitant]
     Active Substance: METAMIZOLE SODIUM
     Dosage: UNK, 4X/DAY
     Route: 048
     Dates: start: 20171203
  18. PANTOZOL [Suspect]
     Active Substance: PANTOPRAZOLE SODIUM
     Dosage: 40 MG, QD
     Route: 048
  19. CHLORHEXIDINE [Concomitant]
     Active Substance: CHLORHEXIDINE
     Dosage: UNK
     Dates: start: 20171203

REACTIONS (3)
  - Delirium [Recovering/Resolving]
  - Neoplasm progression [Fatal]
  - General physical health deterioration [Fatal]

NARRATIVE: CASE EVENT DATE: 20171128
